FAERS Safety Report 5144631-2 (Version None)
Quarter: 2006Q4

REPORT INFORMATION
  Report Type: 
  Country: None (occurrence: None)
  Receive Date: 20061031
  Receipt Date: 20060927
  Transmission Date: 20070319
  Serious: Yes (Other)
  Sender: FDA-Public Use
  Company Number: 2006JP003191

PATIENT
  Age: 54 Year
  Sex: Male
  Weight: 50 kg

DRUGS (11)
  1. FUNGUARD [Suspect]
     Indication: FUNGAL INFECTION
     Dosage: 150 MG, IV DRIP
     Route: 041
     Dates: start: 20060612, end: 20060626
  2. DIFLUCAN              (FLUCONAZOLE) CAPSULE [Concomitant]
  3. MAXIPIME [Concomitant]
  4. VANCOMYCIN                      (VANCOMYCIN HYDROCHLORIDE) INJECTION [Concomitant]
  5. CIPROXAN                    (CIPROFLOXACIN HYDROCHLORIDE) TABLET [Concomitant]
  6. DECADRON [Concomitant]
  7. ONCOVIN                           (VINCRISTINE SULFATE) INJECTION [Concomitant]
  8. PREDONINE                       (PREDNISOLONE SODIUM SUCCINATE) INJECT [Concomitant]
  9. POLYGLOBIN                       (IMMUNOGLOBULIN HUMAN NORMAL) INJECTI [Concomitant]
  10. NEUPOGEN [Concomitant]
  11. FOY              (GABEXATE MESILATE) INJECTION [Concomitant]

REACTIONS (1)
  - DISSEMINATED INTRAVASCULAR COAGULATION [None]
